FAERS Safety Report 6130295-8 (Version None)
Quarter: 2009Q1

REPORT INFORMATION
  Report Type: 
  Country: None (occurrence: None)
  Receive Date: 20090324
  Receipt Date: 20090312
  Transmission Date: 20090719
  Serious: Yes (Hospitalization)
  Sender: FDA-Public Use
  Company Number: FR-PFIZER INC-2009184068

PATIENT

DRUGS (1)
  1. CHAMPIX [Suspect]
     Route: 048
     Dates: start: 20071204, end: 20080408

REACTIONS (2)
  - ECZEMA [None]
  - TOXIC SKIN ERUPTION [None]
